FAERS Safety Report 14772232 (Version 2)
Quarter: 2018Q2

REPORT INFORMATION
  Report Type: Report from Study
  Country: US (occurrence: US)
  Receive Date: 20180418
  Receipt Date: 20180628
  Transmission Date: 20180711
  Serious: Yes (Hospitalization, Other)
  Sender: FDA-Public Use
  Company Number: US-AMGEN-USASL2018050108

PATIENT
  Age: 71 Year
  Sex: Female

DRUGS (2)
  1. REPATHA [Suspect]
     Active Substance: EVOLOCUMAB
     Indication: HYPERCHOLESTEROLAEMIA
     Dosage: 140 MG, Q2WK
     Route: 065
  2. SYNTHROID [Concomitant]
     Active Substance: LEVOTHYROXINE SODIUM

REACTIONS (8)
  - Blood creatinine increased [Unknown]
  - Nausea [Unknown]
  - Blood calcium increased [Unknown]
  - Abdominal pain upper [Unknown]
  - Appendicitis [Unknown]
  - Muscle spasms [Unknown]
  - Glomerular filtration rate decreased [Unknown]
  - Hernia repair [Unknown]
